FAERS Safety Report 9943449 (Version 2)
Quarter: 2014Q1

REPORT INFORMATION
  Report Type: Spontaneous
  Country: PR (occurrence: PR)
  Receive Date: 20140303
  Receipt Date: 20140303
  Transmission Date: 20141002
  Serious: Yes (Hospitalization)
  Sender: FDA-Public Use
  Company Number: PR-ABBVIE-12P-131-1002784-00

PATIENT
  Age: 69 Year
  Sex: Female
  Weight: 68.1 kg

DRUGS (7)
  1. HUMIRA [Suspect]
     Indication: OSTEOARTHRITIS
     Route: 058
     Dates: start: 2010, end: 20121011
  2. HUMIRA [Suspect]
     Indication: OSTEOARTHRITIS
     Route: 058
  3. DIOVAN [Concomitant]
     Indication: HYPERTENSION
     Route: 048
  4. PREDNISONE [Concomitant]
     Indication: OSTEOARTHRITIS
     Route: 048
  5. FOLIC ACID [Concomitant]
     Indication: OSTEOARTHRITIS
     Route: 048
  6. METHOTREXATE [Concomitant]
     Indication: OSTEOARTHRITIS
     Route: 048
  7. TRAMADOL [Concomitant]
     Dosage: 2 TABLETS DAILY PRN
     Route: 048

REACTIONS (4)
  - Fall [Recovered/Resolved]
  - Rib fracture [Recovering/Resolving]
  - Injection site haemorrhage [Recovered/Resolved]
  - Injection site haemorrhage [Unknown]
